FAERS Safety Report 9735496 (Version 10)
Quarter: 2016Q3

REPORT INFORMATION
  Report Type: Spontaneous
  Country: US (occurrence: US)
  Receive Date: 20131206
  Receipt Date: 20160729
  Transmission Date: 20161109
  Serious: Yes (Life-Threatening, Hospitalization, Disabling, Other)
  Sender: FDA-Public Use
  Company Number: US-009507513-1312USA001898

PATIENT
  Sex: Female
  Weight: 52.15 kg

DRUGS (5)
  1. FOSAMAX [Suspect]
     Active Substance: ALENDRONATE SODIUM
     Dosage: 70 MG, Q 7 DAYS
     Route: 048
  2. FOSAMAX [Suspect]
     Active Substance: ALENDRONATE SODIUM
     Indication: BONE DENSITY DECREASED
     Dosage: 10 MG, UNK
     Route: 048
     Dates: start: 19980526, end: 200902
  3. ALENDRONATE SODIUM. [Suspect]
     Active Substance: ALENDRONATE SODIUM
     Indication: BONE DENSITY DECREASED
     Dosage: 70 MG, QW
     Route: 048
     Dates: start: 200802, end: 20110311
  4. FOSAMAX [Suspect]
     Active Substance: ALENDRONATE SODIUM
     Indication: OSTEOPOROSIS
     Dosage: UNK
     Route: 048
     Dates: start: 2001, end: 200802
  5. ALENDRONATE SODIUM. [Suspect]
     Active Substance: ALENDRONATE SODIUM
     Indication: OSTEOPOROSIS
     Dosage: 70 MG, WEEKLY ON FRIDAYS
     Route: 048
     Dates: start: 20090216, end: 201212

REACTIONS (57)
  - Low turnover osteopathy [Not Recovered/Not Resolved]
  - Osteoporosis [Not Recovered/Not Resolved]
  - Hypothyroidism [Not Recovered/Not Resolved]
  - Balance disorder [Unknown]
  - Anaemia [Not Recovered/Not Resolved]
  - Fracture nonunion [Unknown]
  - Goitre [Unknown]
  - Left ventricular hypertrophy [Unknown]
  - Haemorrhoids [Unknown]
  - Varicose vein [Unknown]
  - Joint arthroplasty [Unknown]
  - Micturition urgency [Unknown]
  - Implant site pain [Unknown]
  - Peripheral swelling [Unknown]
  - Defect conduction intraventricular [Unknown]
  - Bundle branch block right [Unknown]
  - Electrocardiogram Q waves [Unknown]
  - Hyponatraemia [Unknown]
  - Haemorrhagic anaemia [Unknown]
  - Constipation [Unknown]
  - Femur fracture [Unknown]
  - Femur fracture [Not Recovered/Not Resolved]
  - Femur fracture [Unknown]
  - Electrocardiogram ST-T change [Unknown]
  - Closed fracture manipulation [Unknown]
  - Nocturia [Unknown]
  - Stress urinary incontinence [Unknown]
  - Cataract operation [Unknown]
  - Petechiae [Unknown]
  - Muscular weakness [Unknown]
  - Gastrooesophageal reflux disease [Unknown]
  - Hypernatraemia [Unknown]
  - Bundle branch block right [Unknown]
  - Osteoarthritis [Unknown]
  - Hip fracture [Not Recovered/Not Resolved]
  - Ulna fracture [Unknown]
  - Radius fracture [Unknown]
  - Device failure [Unknown]
  - Device failure [Unknown]
  - Hypertension [Not Recovered/Not Resolved]
  - Rheumatoid arthritis [Not Recovered/Not Resolved]
  - Osteoarthritis [Unknown]
  - Synovial cyst [Unknown]
  - Dizziness [Unknown]
  - Constipation [Not Recovered/Not Resolved]
  - Joint arthroplasty [Unknown]
  - Deafness [Unknown]
  - Femur fracture [Unknown]
  - Osteoporosis [Unknown]
  - Fall [Unknown]
  - Arthralgia [Not Recovered/Not Resolved]
  - Electrocardiogram T wave inversion [Unknown]
  - Hyperlipidaemia [Recovering/Resolving]
  - Fall [Unknown]
  - Adenotonsillectomy [Unknown]
  - Hyponatraemia [Recovered/Resolved]
  - Osteopenia [Unknown]

NARRATIVE: CASE EVENT DATE: 2007
